FAERS Safety Report 14848108 (Version 1)
Quarter: 2018Q2

REPORT INFORMATION
  Report Type: Spontaneous
  Country: DE (occurrence: DE)
  Receive Date: 20180504
  Receipt Date: 20180504
  Transmission Date: 20180711
  Serious: Yes (Congenital Anomaly)
  Sender: FDA-Public Use
  Company Number: DE-MYLANLABS-2018M1028558

PATIENT
  Sex: Male
  Weight: 1.4 kg

DRUGS (9)
  1. METFORMIN [Suspect]
     Active Substance: METFORMIN HYDROCHLORIDE
     Indication: TYPE 2 DIABETES MELLITUS
     Dosage: UNK
     Route: 064
  2. QUETIAPINE. [Suspect]
     Active Substance: QUETIAPINE
     Indication: DEPRESSION
     Dosage: 400 MG, QD, 400 [MG ]/ INDIKATION NICHT KLAR.
     Route: 064
     Dates: start: 20161222, end: 20170802
  3. NOVORAPID [Concomitant]
     Active Substance: INSULIN ASPART
     Indication: TYPE 2 DIABETES MELLITUS
     Dosage: 58 [IE/D ]/ 20-20-18-0
     Route: 064
  4. FOLSAEURE [Concomitant]
     Active Substance: FOLIC ACID
     Indication: PROPHYLAXIS OF NEURAL TUBE DEFECT
     Dosage: UNK
     Route: 064
  5. CERGEM [Concomitant]
     Active Substance: GEMEPROST
     Indication: LABOUR INDUCTION
     Dosage: UNK
     Route: 064
  6. CYTOTEC [Concomitant]
     Active Substance: MISOPROSTOL
     Indication: LABOUR INDUCTION
     Dosage: UNK
     Route: 064
  7. DIPIPERON [Suspect]
     Active Substance: PIPAMPERONE
     Indication: DEPRESSION
     Dosage: INDIKATION NICHT KLAR.
     Route: 064
  8. LANTUS [Concomitant]
     Active Substance: INSULIN GLARGINE
     Indication: TYPE 2 DIABETES MELLITUS
     Dosage: 24 IU, QD, 24 [IE/D ]/ 0-0-0-24
     Route: 064
     Dates: start: 20170310, end: 20170607
  9. OXYTOCIN. [Concomitant]
     Active Substance: OXYTOCIN
     Indication: LABOUR INDUCTION
     Dosage: UNK
     Route: 064

REACTIONS (4)
  - Renal aplasia [Not Recovered/Not Resolved]
  - Congenital cystic kidney disease [Not Recovered/Not Resolved]
  - Foetal exposure during pregnancy [Recovered/Resolved]
  - Heart disease congenital [Not Recovered/Not Resolved]
